FAERS Safety Report 18273998 (Version 2)
Quarter: 2020Q4

REPORT INFORMATION
  Report Type: Spontaneous
  Country: JP (occurrence: JP)
  Receive Date: 20200916
  Receipt Date: 20201223
  Transmission Date: 20210113
  Serious: Yes (Death)
  Sender: FDA-Public Use
  Company Number: JP-PFIZER INC-2020356404

PATIENT
  Age: 8 Decade
  Sex: Male
  Weight: 65 kg

DRUGS (4)
  1. AMLODIPINE [Concomitant]
     Active Substance: AMLODIPINE BESYLATE
  2. SILDENAFIL CITRATE. [Suspect]
     Active Substance: SILDENAFIL CITRATE
     Dosage: UNK
  3. TELMISARTAN. [Concomitant]
     Active Substance: TELMISARTAN
  4. TADALAFIL. [Suspect]
     Active Substance: TADALAFIL
     Dosage: UNK

REACTIONS (3)
  - Myocardial rupture [Fatal]
  - Road traffic accident [Fatal]
  - Prescription drug used without a prescription [Fatal]
